FAERS Safety Report 14602520 (Version 4)
Quarter: 2018Q2

REPORT INFORMATION
  Report Type: Spontaneous
  Country: US (occurrence: US)
  Receive Date: 20180306
  Receipt Date: 20180621
  Transmission Date: 20180711
  Serious: Yes (Hospitalization)
  Sender: FDA-Public Use
  Company Number: US-PFIZER INC-2018089670

PATIENT
  Age: 68 Year
  Sex: Female
  Weight: 47.17 kg

DRUGS (2)
  1. IBRANCE [Suspect]
     Active Substance: PALBOCICLIB
     Dosage: 125 MG, 1X/DAY (125MG CAPSULE ONCE DAILY BY MOUTH EVERY DAY)
     Route: 048
     Dates: start: 201708
  2. IBRANCE [Suspect]
     Active Substance: PALBOCICLIB
     Indication: BREAST CANCER METASTATIC
     Dosage: 100 MG, 1X/DAY
     Route: 048
     Dates: start: 201708

REACTIONS (2)
  - Alopecia [Not Recovered/Not Resolved]
  - Scar [Recovered/Resolved]

NARRATIVE: CASE EVENT DATE: 2017
